FAERS Safety Report 18228237 (Version 29)
Quarter: 2021Q3

REPORT INFORMATION
  Report Type: Report from Study
  Country: FR (occurrence: FR)
  Receive Date: 20200903
  Receipt Date: 20210819
  Transmission Date: 20211014
  Serious: Yes (Death, Life-Threatening, Hospitalization, Other)
  Sender: FDA-Public Use
  Company Number: FR-PFIZER INC-2020340763

PATIENT
  Age: 74 Year
  Sex: Male

DRUGS (106)
  1. LANSOPRAZOLE. [Suspect]
     Active Substance: LANSOPRAZOLE
     Indication: GASTROINTESTINAL DISORDER PROPHYLAXIS
     Dosage: 78 MG
     Route: 048
  2. PIPERACILLIN/TAZOBACTAM [Suspect]
     Active Substance: PIPERACILLIN SODIUM\TAZOBACTAM SODIUM
     Indication: PNEUMONIA
     Dosage: 4 GRAM, TID
     Route: 042
     Dates: start: 20200723, end: 20200730
  3. PARACETAMOL [Suspect]
     Active Substance: ACETAMINOPHEN
     Indication: PYREXIA
     Dosage: 1 GRAM, PRN
     Route: 042
     Dates: start: 20200719, end: 20200730
  4. MACROGOL 4000 [Suspect]
     Active Substance: POLYETHYLENE GLYCOL 4000
     Indication: CONSTIPATION
     Dosage: 2 SACHET, BID
     Route: 048
     Dates: start: 20200713, end: 20200715
  5. IPRATROPIUM [Suspect]
     Active Substance: IPRATROPIUM
     Dosage: 6 MG
     Route: 055
  6. IPRATROPIUM [Suspect]
     Active Substance: IPRATROPIUM
     Dosage: 6 MG
     Route: 055
  7. DIAZEPAM. [Suspect]
     Active Substance: DIAZEPAM
     Dosage: UNK
     Route: 065
  8. CEFOTAXIME [Suspect]
     Active Substance: CEFOTAXIME SODIUM
     Dosage: 42 GRAM
     Route: 042
  9. SUFENTANIL CITRATE. [Suspect]
     Active Substance: SUFENTANIL CITRATE
     Indication: ANALGESIC THERAPY
  10. BENERVA [Suspect]
     Active Substance: THIAMINE HYDROCHLORIDE
     Dosage: UNK
     Route: 065
  11. NORADRENALINE (NORPINEPHRINE) [Suspect]
     Active Substance: NOREPINEPHRINE
     Dosage: 0.8 MILLIGRAM, Q1HR
     Route: 042
     Dates: start: 20200709, end: 20200712
  12. HYDROXYZINE [Suspect]
     Active Substance: HYDROXYZINE HYDROCHLORIDE
     Dosage: UNK
     Route: 065
  13. MIDAZOLAM. [Suspect]
     Active Substance: MIDAZOLAM
     Indication: SEDATION
     Dosage: 5 MG
     Route: 042
     Dates: start: 20200709, end: 20200713
  14. LORAZEPAM. [Suspect]
     Active Substance: LORAZEPAM
     Indication: ANXIOLYTIC THERAPY
     Dosage: 2.5 MG, 4X/DAY
     Route: 048
     Dates: start: 20200726, end: 20200727
  15. GLUCONATE DE POTASSIUM [Suspect]
     Active Substance: POTASSIUM GLUCONATE
     Dosage: UNK
     Route: 065
  16. AMIODARONE [Suspect]
     Active Substance: AMIODARONE
     Indication: ATRIAL FIBRILLATION
     Dosage: 907.2 MILLIGRAM, QD
     Route: 042
     Dates: start: 20200725, end: 20200727
  17. POTASSIUM CHLORIDE. [Suspect]
     Active Substance: POTASSIUM CHLORIDE
     Dosage: UNK
     Route: 065
  18. THIAMINE HYDROCHLORIDE. [Suspect]
     Active Substance: THIAMINE HYDROCHLORIDE
     Dosage: UNK
  19. HYDROXYCARBAMIDE [Concomitant]
     Active Substance: HYDROXYUREA
     Dosage: UNK
     Route: 042
     Dates: start: 20200709, end: 20200712
  20. METHYLPREDNISOLONE. [Suspect]
     Active Substance: METHYLPREDNISOLONE
     Dosage: 120 MG, 1D
     Route: 042
     Dates: start: 20200708, end: 20200723
  21. PIPERACILLIN/TAZOBACTAM [Suspect]
     Active Substance: PIPERACILLIN SODIUM\TAZOBACTAM SODIUM
     Indication: INFECTION
     Dosage: 12 GRAM, QD
     Route: 042
     Dates: start: 20200723, end: 20200730
  22. DIAMOX SEQUELS [Suspect]
     Active Substance: ACETAZOLAMIDE
     Dosage: UNK
     Route: 065
  23. NIMBEX [NIMESULIDE] [Suspect]
     Active Substance: NIMESULIDE
     Indication: ENDOTRACHEAL INTUBATION
     Dosage: 20 MG, 1X/DAY
     Route: 042
     Dates: start: 20200715, end: 20200715
  24. DUPHALAC [Suspect]
     Active Substance: LACTULOSE
     Dosage: 40 MILLIGRAM, QD
     Route: 048
     Dates: start: 20200713, end: 20200715
  25. SUFENTANIL CITRATE. [Suspect]
     Active Substance: SUFENTANIL CITRATE
     Indication: GAIT DISTURBANCE
     Dosage: UNK
     Route: 042
     Dates: start: 20200709, end: 20200717
  26. SERESTA [Suspect]
     Active Substance: OXAZEPAM
     Dosage: 20 MG
  27. LOPERAMIDE [Suspect]
     Active Substance: LOPERAMIDE
     Dosage: 4 G
     Route: 065
  28. SERTRALINE HCL [Suspect]
     Active Substance: SERTRALINE HYDROCHLORIDE
     Dosage: 746.35 MILLIGRAM
     Route: 048
     Dates: start: 20200726, end: 20200810
  29. METHYLPREDNISOLONE. [Suspect]
     Active Substance: METHYLPREDNISOLONE
     Dosage: 1800 MILLIGRAM
     Route: 042
  30. TEMESTA (LORAZEPAM) [Suspect]
     Active Substance: LORAZEPAM
     Dosage: 2.5 MILLIGRAM, QID
     Route: 048
     Dates: start: 20200726, end: 20200726
  31. CEFOTAXIME [Suspect]
     Active Substance: CEFOTAXIME SODIUM
     Dosage: 6 GRAM
     Route: 042
     Dates: start: 20200708, end: 20200715
  32. SERESTA [Suspect]
     Active Substance: OXAZEPAM
     Indication: ANXIOLYTIC THERAPY
     Dosage: 10 MILLIGRAM, QD
     Route: 048
     Dates: start: 20200802, end: 20200804
  33. SERESTA [Suspect]
     Active Substance: OXAZEPAM
     Dosage: 10 MILLIGRAM, QD
     Route: 048
  34. SERESTA [Suspect]
     Active Substance: OXAZEPAM
     Dosage: 20 MG
  35. ROVAMYCINE [SPIRAMYCIN] [Suspect]
     Active Substance: SPIRAMYCIN
     Indication: PNEUMONIA
     Dosage: 9 MIU, 1X/DAY
     Route: 042
     Dates: start: 20200708, end: 20200715
  36. ROVAMYCINE [SPIRAMYCIN] [Suspect]
     Active Substance: SPIRAMYCIN
     Dosage: 63 INTERNATIONAL UNIT
     Route: 065
  37. ATORVASTATINE [ATORVASTATIN] [Concomitant]
     Active Substance: ATORVASTATIN
     Dosage: UNK
     Route: 065
  38. GLUCONATE DE POTASSIUM [Concomitant]
     Active Substance: POTASSIUM GLUCONATE
     Dosage: UNK
     Route: 065
  39. LANSOPRAZOLE. [Suspect]
     Active Substance: LANSOPRAZOLE
     Indication: PROPHYLAXIS
     Dosage: 30 MILLIGRAM, QD
     Route: 048
     Dates: start: 20200710, end: 20200805
  40. LANSOPRAZOLE. [Suspect]
     Active Substance: LANSOPRAZOLE
     Dosage: 3 MILLIGRAM, QD
     Route: 048
     Dates: start: 20200210, end: 20200805
  41. PIPERACILLIN/TAZOBACTAM [Suspect]
     Active Substance: PIPERACILLIN SODIUM\TAZOBACTAM SODIUM
     Indication: TRACHEOBRONCHITIS
     Dosage: 84 GRAM
     Route: 042
  42. MORPHINE SULFATE. [Suspect]
     Active Substance: MORPHINE SULFATE
     Dosage: UNK
     Route: 065
  43. IPRATROPIUM [Suspect]
     Active Substance: IPRATROPIUM
     Dosage: 0.5 MG, TID
     Route: 055
     Dates: start: 20200730, end: 20200803
  44. ISOSORBIDE DINITRATE. [Suspect]
     Active Substance: ISOSORBIDE DINITRATE
     Dosage: UNK
     Route: 065
     Dates: start: 20200714, end: 20200720
  45. DUPHALAC [Suspect]
     Active Substance: LACTULOSE
     Dosage: 80 MG
     Route: 048
  46. BENERVA [Suspect]
     Active Substance: THIAMINE HYDROCHLORIDE
     Dosage: UNK
     Route: 065
  47. LOVENOX [Suspect]
     Active Substance: ENOXAPARIN SODIUM
     Indication: PHLEBITIS
     Dosage: 6000 IU, SINGLE
     Route: 058
     Dates: start: 20200708, end: 20200807
  48. PROPOFOL. [Suspect]
     Active Substance: PROPOFOL
     Indication: SEDATION
     Dosage: 150 MG/HR, CO
     Route: 042
     Dates: start: 20200709, end: 20200720
  49. HUMALOG [Suspect]
     Active Substance: INSULIN LISPRO
     Dosage: 1 IU, CO
     Route: 042
     Dates: start: 20200709, end: 20200730
  50. MORPHINE HYDROCHLORIDE [Suspect]
     Active Substance: MORPHINE HYDROCHLORIDE
     Dosage: UNK
     Route: 065
  51. LORAZEPAM. [Suspect]
     Active Substance: LORAZEPAM
     Dosage: 10 MILLIGRAM, QD
     Route: 048
     Dates: start: 20200726, end: 20200727
  52. IMODIUM [Suspect]
     Active Substance: LOPERAMIDE HYDROCHLORIDE
     Dosage: UNK
     Route: 065
  53. NIMBEX [Suspect]
     Active Substance: CISATRACURIUM BESYLATE
     Indication: ENDOTRACHEAL INTUBATION
     Dosage: 20 MILLIGRAM
     Route: 042
     Dates: start: 20200715, end: 20200715
  54. INSULIN LISPRO DCI [Suspect]
     Active Substance: INSULIN LISPRO
     Dosage: 1 IU
     Route: 042
     Dates: start: 20200709, end: 20200730
  55. LANSOPRAZOLE. [Suspect]
     Active Substance: LANSOPRAZOLE
     Indication: PROPHYLAXIS
     Dosage: 78 MILLIGRAM, QD
     Route: 048
  56. TEMESTA (LORAZEPAM) [Suspect]
     Active Substance: LORAZEPAM
     Indication: ANXIOLYTIC THERAPY
     Dosage: 10 MILLIGRAM, QD
     Route: 048
     Dates: start: 20200726, end: 20200727
  57. TEMESTA (LORAZEPAM) [Suspect]
     Active Substance: LORAZEPAM
     Dosage: 10 MG
     Route: 048
     Dates: start: 20200726, end: 20200727
  58. CATAPRESSAN [CLONIDINE HYDROCHLORIDE] [Suspect]
     Active Substance: CLONIDINE HYDROCHLORIDE
     Indication: HYPERTENSION
     Dosage: UNK, 1X/DAY
     Route: 065
     Dates: start: 20200717, end: 20200717
  59. IPRATROPIUM [Suspect]
     Active Substance: IPRATROPIUM
     Indication: INHALATION THERAPY
     Dosage: 1.5 MILLIGRAM
     Route: 055
  60. DIAZEPAM. [Suspect]
     Active Substance: DIAZEPAM
     Dosage: UNK
     Route: 065
  61. NIMBEX [NIMESULIDE] [Suspect]
     Active Substance: NIMESULIDE
     Indication: NEUROMUSCULAR BLOCKING THERAPY
  62. PHOSPHONEUROS [Suspect]
     Active Substance: CALCIUM PHOSPHATE, DIBASIC, ANHYDROUS\MAGNESIUM GLYCEROPHOSPHATE\PHOSPHORIC ACID\SODIUM PHOSPHATE, DIBASIC
     Indication: PNEUMONIA
     Dosage: 6 GRAM, QD
     Route: 042
     Dates: start: 20200708, end: 20200715
  63. HYDROXYZINE [Suspect]
     Active Substance: HYDROXYZINE HYDROCHLORIDE
     Dosage: UNK
     Route: 065
  64. LOPERAMIDE [Suspect]
     Active Substance: LOPERAMIDE
     Indication: DIARRHOEA
     Dosage: 4 MG, SINGLE
     Route: 048
     Dates: start: 20200804, end: 20200804
  65. GLUCONATE DE CALCIUM [Suspect]
     Active Substance: CALCIUM GLUCONATE
     Dosage: UNK
     Route: 065
  66. OXAZEPAM. [Suspect]
     Active Substance: OXAZEPAM
     Indication: ANXIOLYTIC THERAPY
     Dosage: 10 MG, 1X/DAY
     Route: 048
     Dates: start: 20200802, end: 20200804
  67. OXAZEPAM. [Suspect]
     Active Substance: OXAZEPAM
     Dosage: 90 MILLIGRAM
     Route: 065
  68. IMODIUM [Suspect]
     Active Substance: LOPERAMIDE HYDROCHLORIDE
     Indication: DIARRHOEA
     Dosage: 4 MG, SINGLE
     Route: 065
  69. KARDEGIC [Concomitant]
     Active Substance: ASPIRIN DL-LYSINE
     Dosage: UNK
     Route: 065
  70. LANSOPRAZOLE. [Suspect]
     Active Substance: LANSOPRAZOLE
     Indication: STRESS ULCER
     Dosage: 3 MILLIGRAM, QD
     Route: 048
     Dates: start: 20200710, end: 20200805
  71. SERTRALINE HCL [Suspect]
     Active Substance: SERTRALINE HYDROCHLORIDE
     Indication: DEPRESSION
     Dosage: 50 MILLIGRAM, QD (50 MG, SINGLE )
     Route: 048
     Dates: start: 20200726, end: 20200810
  72. PIPERACILLIN/TAZOBACTAM [Suspect]
     Active Substance: PIPERACILLIN SODIUM\TAZOBACTAM SODIUM
     Dosage: 12 G
     Route: 042
  73. TIORFAN [Suspect]
     Active Substance: RACECADOTRIL
     Dosage: 8 DAYS
     Route: 065
     Dates: start: 20200727, end: 20200804
  74. SERESTA [Suspect]
     Active Substance: OXAZEPAM
     Dosage: UNK MG
  75. LOVENOX [Suspect]
     Active Substance: ENOXAPARIN SODIUM
     Indication: PROPHYLAXIS
     Dosage: 180 KILO?INTERNATIONAL UNIT
     Route: 065
  76. DIFFU?K [Suspect]
     Active Substance: POTASSIUM CHLORIDE
     Dosage: UNK
     Route: 065
  77. FRUSEMIDE [FUROSEMIDE] [Suspect]
     Active Substance: FUROSEMIDE
     Dosage: UNK
     Route: 065
  78. OTILIMAB. [Suspect]
     Active Substance: OTILIMAB
     Indication: CORONAVIRUS INFECTION
     Dosage: 1 DF
     Route: 058
     Dates: start: 20200708
  79. CISATRACURIUM BESILATE [Suspect]
     Active Substance: CISATRACURIUM BESYLATE
     Indication: ENDOTRACHEAL INTUBATION
     Dosage: 20 MG
     Route: 042
     Dates: start: 20200715, end: 20200715
  80. KARDEGIC [Concomitant]
     Active Substance: ASPIRIN DL-LYSINE
     Dosage: UNK
     Route: 065
  81. AMIODARONE [Concomitant]
     Active Substance: AMIODARONE
     Dosage: UNK
     Dates: start: 20200725, end: 20200727
  82. SERTRALINE HCL [Suspect]
     Active Substance: SERTRALINE HYDROCHLORIDE
     Dosage: 50 MG, 1X/DAY
     Route: 048
  83. METHYLPREDNISOLONE. [Suspect]
     Active Substance: METHYLPREDNISOLONE
     Indication: ACUTE RESPIRATORY DISTRESS SYNDROME
     Dosage: 1200 MG, 1X/DAY
     Route: 042
     Dates: start: 20200708, end: 20200723
  84. ISUPREL [Suspect]
     Active Substance: ISOPROTERENOL HYDROCHLORIDE
     Dosage: UNK
     Route: 065
     Dates: start: 20200711, end: 20200713
  85. CATAPRESSAN [CLONIDINE HYDROCHLORIDE] [Suspect]
     Active Substance: CLONIDINE HYDROCHLORIDE
     Indication: HYPERTENSION
     Dosage: UNK
     Dates: start: 20200817, end: 20200817
  86. CEFOTAXIME [Suspect]
     Active Substance: CEFOTAXIME SODIUM
     Indication: PNEUMONIA
     Dosage: 2 GRAM, TID
     Route: 042
     Dates: start: 20200708, end: 20200715
  87. SUFENTANIL CITRATE. [Suspect]
     Active Substance: SUFENTANIL CITRATE
     Indication: SEDATION
     Dosage: 33 UG/MIN, CO
     Route: 042
     Dates: start: 20200709, end: 20200717
  88. NORADRENALINE (NORPINEPHRINE) [Suspect]
     Active Substance: NOREPINEPHRINE
     Indication: SEDATION
     Dosage: 8 MILLIGRAM, QD
     Route: 042
     Dates: start: 20200709, end: 20200712
  89. NORADRENALINE (NORPINEPHRINE) [Suspect]
     Active Substance: NOREPINEPHRINE
     Dosage: 0.8 MEQ, CYCLIC (19.20 MEQ MILLIEQUIVALENT(S) ( 0.8 MEQ MILLIEQUIVALENT(S) ),1 IN 1HOUR)
     Route: 042
     Dates: start: 20200709, end: 20200712
  90. SERESTA [Suspect]
     Active Substance: OXAZEPAM
     Dosage: 20 MG, 1X/DAY
     Route: 048
  91. DIFFU?K [Suspect]
     Active Substance: POTASSIUM CHLORIDE
     Dosage: UNK
     Route: 065
  92. GLUCONATE DE POTASSIUM [Suspect]
     Active Substance: POTASSIUM GLUCONATE
     Dosage: UNK
     Route: 065
  93. ENOXAPARIN SODIUM. [Suspect]
     Active Substance: ENOXAPARIN SODIUM
     Indication: PHLEBITIS
     Dosage: 6000 INTERNATIONAL UNIT
     Route: 058
  94. TEMESTA (LORAZEPAM) [Suspect]
     Active Substance: LORAZEPAM
     Dosage: 40 MILLIGRAM, QD
     Dates: start: 20200726, end: 20200727
  95. REMIFENTANIL [Suspect]
     Active Substance: REMIFENTANIL
     Indication: SEDATION
     Dosage: 0.1 MCG/KG/MIN, CO
     Route: 042
     Dates: start: 20200720, end: 20200730
  96. URAPIDIL [Suspect]
     Active Substance: URAPIDIL
     Indication: HYPERTENSION
     Dosage: 5 MILLIGRAM, QD
     Route: 042
     Dates: start: 20200709, end: 20200709
  97. CEFOTAXIME [Suspect]
     Active Substance: CEFOTAXIME SODIUM
     Dosage: 42 UNK, BID
     Route: 042
  98. DUPHALAC [Suspect]
     Active Substance: LACTULOSE
     Indication: CONSTIPATION
     Dosage: 20 G, 2X/DAY (20 G GRAM(S) ),1 IN 12HOUR)
     Route: 048
     Dates: start: 20200713, end: 20200715
  99. DUPHALAC [Suspect]
     Active Substance: LACTULOSE
     Dosage: 40 MILLIGRAM
     Route: 048
  100. FUROSEMIDE. [Suspect]
     Active Substance: FUROSEMIDE
     Dosage: UNK
     Route: 065
  101. GLUCONATE DE CALCIUM [Suspect]
     Active Substance: CALCIUM GLUCONATE
     Dosage: UNK
     Route: 065
  102. LORAZEPAM. [Suspect]
     Active Substance: LORAZEPAM
     Dosage: 10 MG, 1X/DAY
     Route: 048
  103. IMODIUM [Suspect]
     Active Substance: LOPERAMIDE HYDROCHLORIDE
     Dosage: 4 MG, SINGLE
     Route: 048
     Dates: start: 20200804, end: 20200804
  104. LOPERAMIDE HYDROCHLORIDE. [Suspect]
     Active Substance: LOPERAMIDE HYDROCHLORIDE
     Indication: DIARRHOEA
     Dosage: 4 MG, 1X/DAY
     Route: 048
     Dates: start: 20200804, end: 20200804
  105. LACTULOSE. [Suspect]
     Active Substance: LACTULOSE
     Dosage: 80 G
     Route: 048
  106. ISOPRENALINE [Suspect]
     Active Substance: ISOPROTERENOL HYDROCHLORIDE
     Dosage: UNK
     Dates: start: 20200711, end: 20210713

REACTIONS (1)
  - Toxic epidermal necrolysis [Fatal]

NARRATIVE: CASE EVENT DATE: 20200809
